FAERS Safety Report 8577313-5 (Version None)
Quarter: 2012Q3

REPORT INFORMATION
  Report Type: 
  Country: None (occurrence: None)
  Receive Date: 20120807
  Receipt Date: 20120802
  Transmission Date: 20120928
  Serious: Yes (Other)
  Sender: FDA-Public Use
  Company Number: FR-ELI_LILLY_AND_COMPANY-FR201208000594

PATIENT
  Sex: Male

DRUGS (3)
  1. ANTIPSYCHOTICS [Concomitant]
     Dosage: 1 DF, UNKNOWN
  2. ZYPREXA [Suspect]
     Dosage: 10 MG, UNKNOWN
     Route: 048
  3. CIALIS [Suspect]
     Dosage: 5 MG, QD
     Route: 048

REACTIONS (2)
  - HAEMATOSPERMIA [None]
  - PROSTATITIS [None]
